FAERS Safety Report 15258436 (Version 1)
Quarter: 2018Q3

REPORT INFORMATION
  Report Type: Spontaneous
  Country: US (occurrence: US)
  Receive Date: 20180809
  Receipt Date: 20180809
  Transmission Date: 20181010
  Serious: No
  Sender: FDA-Public Use
  Company Number: US-JNJFOC-20180733077

PATIENT
  Sex: Male

DRUGS (1)
  1. STELARA [Suspect]
     Active Substance: USTEKINUMAB
     Indication: CROHN^S DISEASE
     Route: 058

REACTIONS (4)
  - Off label use [Unknown]
  - Product use issue [Unknown]
  - Drug level decreased [Unknown]
  - Iron deficiency anaemia [Unknown]

NARRATIVE: CASE EVENT DATE: 201807
